FAERS Safety Report 4417093-8 (Version None)
Quarter: 2004Q2

REPORT INFORMATION
  Report Type: 
  Country: None (occurrence: None)
  Receive Date: 20040629
  Receipt Date: 20040303
  Transmission Date: 20050107
  Serious: Yes (Hospitalization)
  Sender: FDA-Public Use
  Company Number: US068271

PATIENT

DRUGS (1)
  1. ARANESP [Suspect]
     Indication: DIALYSIS
     Dosage: 200 MCG, 1 IN 2 WEEKS, SC
     Route: 058
     Dates: start: 20030101

REACTIONS (1)
  - THERAPEUTIC RESPONSE DECREASED [None]
